FAERS Safety Report 25554716 (Version 1)
Quarter: 2025Q3

REPORT INFORMATION
  Report Type: Spontaneous
  Country: US (occurrence: US)
  Receive Date: 20250715
  Receipt Date: 20250715
  Transmission Date: 20251020
  Serious: Yes (Disabling, Other)
  Sender: CHATTEM
  Company Number: US-OPELLA-2025OHG021189

PATIENT
  Sex: Male

DRUGS (1)
  1. GOLD BOND ORIGINAL STRENGTH [Suspect]
     Active Substance: MENTHOL
     Indication: Personal hygiene
     Route: 061
     Dates: start: 1995

REACTIONS (2)
  - Epithelioid mesothelioma [Recovering/Resolving]
  - Exposure to chemical pollution [Unknown]

NARRATIVE: CASE EVENT DATE: 19950101
